FAERS Safety Report 5981746-0 (Version None)
Quarter: 2008Q4

REPORT INFORMATION
  Report Type: 
  Country: None (occurrence: None)
  Receive Date: 20081205
  Receipt Date: 20081128
  Transmission Date: 20090506
  Serious: Yes (Other)
  Sender: FDA-Public Use
  Company Number: JP-B.I. PHARMACEUTICALS,INC./RIDGEFIELD-2008-BP-17841NB

PATIENT
  Age: 7 Decade
  Sex: Female

DRUGS (2)
  1. BI-SIFROL TABLETS [Suspect]
     Indication: PARKINSON'S DISEASE
     Dosage: 1.5MG
     Route: 048
     Dates: start: 20071101, end: 20081101
  2. LEVODOPA [Suspect]
     Indication: PARKINSON'S DISEASE
     Dosage: 300MG
     Route: 048

REACTIONS (2)
  - BLADDER NEOPLASM [None]
  - HALLUCINATION [None]
